FAERS Safety Report 5211826-9 (Version None)
Quarter: 2007Q1

REPORT INFORMATION
  Report Type: 
  Country: None (occurrence: None)
  Receive Date: 20070118
  Receipt Date: 20070104
  Transmission Date: 20070707
  Serious: Yes (Hospitalization)
  Sender: FDA-Public Use
  Company Number: US-ELI_LILLY_AND_COMPANY-US200612002410

PATIENT
  Age: 100 Year
  Sex: Female

DRUGS (1)
  1. FORTEO [Suspect]
     Dosage: UNK, UNK
     Dates: start: 20060101

REACTIONS (5)
  - DEHYDRATION [None]
  - INFLUENZA [None]
  - IRON DEFICIENCY ANAEMIA [None]
  - PAIN [None]
  - VOMITING [None]
